FAERS Safety Report 8357469-X (Version None)
Quarter: 2012Q2

REPORT INFORMATION
  Report Type: 
  Country: None (occurrence: None)
  Receive Date: 20120514
  Receipt Date: 20110615
  Transmission Date: 20120825
  Serious: No
  Sender: FDA-Public Use
  Company Number: US-TEVA-2011003065

PATIENT
  Sex: Female
  Weight: 108.96 kg

DRUGS (2)
  1. LEVOTHYROXINE SODIUM [Concomitant]
     Dates: start: 20110101
  2. NUVIGIL [Suspect]
     Indication: SLEEP APNOEA SYNDROME
     Route: 048
     Dates: start: 20101201

REACTIONS (1)
  - TREMOR [None]
